FAERS Safety Report 9319186 (Version 1)
Quarter: 2013Q2

REPORT INFORMATION
  Report Type: Spontaneous
  Country: US (occurrence: US)
  Receive Date: 20130530
  Receipt Date: 20130530
  Transmission Date: 20140414
  Serious: Yes (Hospitalization, Other)
  Sender: FDA-Public Use
  Company Number: US-TEVA-408588USA

PATIENT
  Age: 60 Year
  Sex: Male

DRUGS (2)
  1. METFORMIN [Suspect]
     Route: 065
  2. VICODIN [Concomitant]
     Route: 065

REACTIONS (3)
  - Toxicity to various agents [Recovering/Resolving]
  - Blindness [Recovering/Resolving]
  - Lactic acidosis [Recovering/Resolving]
